FAERS Safety Report 25808200 (Version 2)
Quarter: 2025Q3

REPORT INFORMATION
  Report Type: Spontaneous
  Country: US (occurrence: US)
  Receive Date: 20250916
  Receipt Date: 20250930
  Transmission Date: 20251020
  Serious: Yes (Other)
  Sender: PFIZER
  Company Number: US-PFIZER INC-202500181432

PATIENT
  Age: 32 Year
  Sex: Female

DRUGS (1)
  1. VELSIPITY [Suspect]
     Active Substance: ETRASIMOD ARGININE
     Dosage: 2 MG ONCE DAILY / 2 MG, 1 TABLET, ORALLY, ONE A DAY
     Route: 048

REACTIONS (17)
  - Rectal haemorrhage [Not Recovered/Not Resolved]
  - Haematochezia [Unknown]
  - Colitis [Unknown]
  - Proctitis ulcerative [Unknown]
  - Defaecation urgency [Unknown]
  - Abdominal pain [Not Recovered/Not Resolved]
  - Diarrhoea [Not Recovered/Not Resolved]
  - Anaemia [Unknown]
  - Mucous stools [Unknown]
  - Back pain [Unknown]
  - Haemorrhoids [Unknown]
  - Abdominal pain upper [Unknown]
  - Nausea [Unknown]
  - Eructation [Unknown]
  - Abdominal pain lower [Unknown]
  - Faeces hard [Unknown]
  - Drug ineffective [Unknown]
